FAERS Safety Report 9402409 (Version 1)
Quarter: 2013Q3

REPORT INFORMATION
  Report Type: Spontaneous
  Country: US (occurrence: None)
  Receive Date: 20130712
  Receipt Date: 20130712
  Transmission Date: 20140515
  Serious: Yes (Other)
  Sender: FDA-Public Use
  Company Number: None

PATIENT
  Age: 42 Year
  Sex: Female
  Weight: 65.77 kg

DRUGS (2)
  1. DYSPORT [Suspect]
     Indication: MIGRAINE
     Dosage: CUTANEOUS
     Dates: start: 20130701, end: 20131101
  2. DYSPORT [Suspect]
     Indication: ANAESTHESIA
     Dosage: CUTANEOUS
     Dates: start: 20130701, end: 20131101

REACTIONS (4)
  - Eye pain [None]
  - Nausea [None]
  - Neck pain [None]
  - Headache [None]
